FAERS Safety Report 4991275-9 (Version None)
Quarter: 2006Q2

REPORT INFORMATION
  Report Type: 
  Country: None (occurrence: None)
  Receive Date: 20060428
  Receipt Date: 20060417
  Transmission Date: 20061013
  Serious: Yes (Other)
  Sender: FDA-Public Use
  Company Number: 2006031945

PATIENT
  Age: 75 Year
  Sex: Female

DRUGS (1)
  1. CELEBREX [Suspect]
     Indication: ILL-DEFINED DISORDER

REACTIONS (6)
  - BASAL CELL CARCINOMA [None]
  - HEARING IMPAIRED [None]
  - PHAEOCHROMOCYTOMA [None]
  - SPINAL FUSION ACQUIRED [None]
  - SPINAL OSTEOARTHRITIS [None]
  - WEIGHT DECREASED [None]
